FAERS Safety Report 8485726-5 (Version None)
Quarter: 2012Q3

REPORT INFORMATION
  Report Type: 
  Country: None (occurrence: None)
  Receive Date: 20120703
  Receipt Date: 20120627
  Transmission Date: 20120928
  Serious: Yes (Life-Threatening)
  Sender: FDA-Public Use
  Company Number: JP-ASTRAZENECA-2012SE30238

PATIENT
  Age: 67 Year
  Sex: Female

DRUGS (29)
  1. MEROPENEM [Suspect]
     Route: 042
     Dates: start: 20120411, end: 20120420
  2. VANCOMYCIN HYDROCHLORIDE [Suspect]
     Indication: MENINGITIS
     Route: 065
     Dates: start: 20120207, end: 20120215
  3. MEROPENEM [Suspect]
     Route: 042
     Dates: start: 20120411, end: 20120420
  4. MEROPENEM [Suspect]
     Route: 042
     Dates: start: 20120427, end: 20120506
  5. ACETAMINOPHEN [Suspect]
     Indication: ANALGESIC THERAPY
     Route: 065
     Dates: start: 20120101, end: 20120507
  6. VANCOMYCIN HYDROCHLORIDE [Suspect]
     Route: 065
     Dates: start: 20120307, end: 20120409
  7. VANCOMYCIN HYDROCHLORIDE [Suspect]
     Route: 065
     Dates: start: 20120427, end: 20120506
  8. PRODIF [Suspect]
     Route: 042
     Dates: start: 20120411, end: 20120423
  9. MEROPENEM [Suspect]
     Route: 042
     Dates: start: 20120427, end: 20120506
  10. CLINDAMYCIN [Suspect]
     Indication: MENINGITIS
     Route: 065
     Dates: start: 20120411, end: 20120506
  11. LENDORMIN [Suspect]
     Indication: INSOMNIA
     Route: 065
     Dates: start: 20120421
  12. ALBUMIN TANNATE [Suspect]
     Indication: PROPHYLAXIS AGAINST DIARRHOEA
     Route: 065
     Dates: start: 20120427, end: 20120507
  13. LANSOPRAZOLE [Suspect]
     Indication: GASTRIC ULCER
     Route: 065
     Dates: start: 20120321, end: 20120507
  14. PREDNISOLONE SODIUM SUCCINATE INJ [Concomitant]
     Indication: ASTHMA
     Dates: start: 20120503, end: 20120507
  15. VANCOMYCIN HYDROCHLORIDE [Suspect]
     Route: 065
     Dates: start: 20120307, end: 20120409
  16. MEROPENEM [Suspect]
     Indication: MENINGITIS
     Route: 042
     Dates: start: 20120117, end: 20120216
  17. ACETAMINOPHEN [Suspect]
     Indication: ANTIPYRESIS
     Route: 065
     Dates: start: 20120101, end: 20120507
  18. CONCENTRATED HUMAN RED BLOOD CELLS [Concomitant]
     Dates: start: 20120119, end: 20120601
  19. VANCOMYCIN HYDROCHLORIDE [Suspect]
     Indication: PSOAS ABSCESS
     Route: 065
     Dates: start: 20120207, end: 20120215
  20. CLINDAMYCIN [Suspect]
     Indication: PSOAS ABSCESS
     Route: 065
     Dates: start: 20120411, end: 20120506
  21. ALFAROL [Suspect]
     Indication: OSTEOPOROSIS
     Route: 065
     Dates: start: 20120419, end: 20120507
  22. FRESH FROZEN HUMAN PLAZMA [Concomitant]
     Dates: start: 20120509, end: 20120514
  23. MEROPENEM [Suspect]
     Indication: PSOAS ABSCESS
     Route: 042
     Dates: start: 20120117, end: 20120216
  24. AMBISOME [Suspect]
     Indication: FUNGAL INFECTION
     Route: 065
     Dates: start: 20120425, end: 20120504
  25. BUPRENORPHINE HCL [Suspect]
     Route: 065
  26. VANCOMYCIN HYDROCHLORIDE [Suspect]
     Route: 065
     Dates: start: 20120427, end: 20120506
  27. AMBISOME [Suspect]
     Indication: DEVICE RELATED INFECTION
     Route: 065
     Dates: start: 20120425, end: 20120504
  28. DEPAKENE [Suspect]
     Indication: CONVULSION
     Route: 065
     Dates: start: 20120413, end: 20120507
  29. CEFAZOLIN SODIUM [Suspect]
     Indication: PROPHYLAXIS AGAINST DIARRHOEA
     Route: 065
     Dates: start: 20120419, end: 20120507

REACTIONS (1)
  - TOXIC EPIDERMAL NECROLYSIS [None]
